FAERS Safety Report 21776982 (Version 3)
Quarter: 2025Q2

REPORT INFORMATION
  Report Type: Report from Study
  Country: FR (occurrence: FR)
  Receive Date: 20221226
  Receipt Date: 20250617
  Transmission Date: 20250717
  Serious: Yes (Death, Life-Threatening, Hospitalization, Other)
  Sender: AUROBINDO
  Company Number: FR-EMA-DD-20221212-6644853-100631

PATIENT
  Age: 58 Year
  Sex: Male
  Weight: 106 kg

DRUGS (17)
  1. AMLODIPINE [Interacting]
     Active Substance: AMLODIPINE BESYLATE
     Indication: Product used for unknown indication
     Route: 048
  2. ATORVASTATIN [Interacting]
     Active Substance: ATORVASTATIN
     Indication: Product used for unknown indication
     Route: 048
  3. BISOPROLOL [Interacting]
     Active Substance: BISOPROLOL
     Indication: Product used for unknown indication
     Route: 048
  4. EPLERENONE [Interacting]
     Active Substance: EPLERENONE
     Indication: Product used for unknown indication
     Route: 048
  5. RAMIPRIL [Interacting]
     Active Substance: RAMIPRIL
     Indication: Product used for unknown indication
     Route: 048
  6. APIXABAN [Interacting]
     Active Substance: APIXABAN
     Indication: Atrial fibrillation
     Route: 048
  7. APIXABAN [Interacting]
     Active Substance: APIXABAN
     Indication: Suicide attempt
  8. ISOPROTERENOL HYDROCHLORIDE [Interacting]
     Active Substance: ISOPROTERENOL HYDROCHLORIDE
     Indication: Atrial fibrillation
     Route: 065
  9. ISOPROTERENOL HYDROCHLORIDE [Interacting]
     Active Substance: ISOPROTERENOL HYDROCHLORIDE
     Indication: Suicide attempt
  10. DOBUTAMINE [Interacting]
     Active Substance: DOBUTAMINE HYDROCHLORIDE
     Indication: Atrial fibrillation
     Route: 065
  11. DOBUTAMINE [Interacting]
     Active Substance: DOBUTAMINE HYDROCHLORIDE
     Indication: Suicide attempt
  12. NOREPINEPHRINE [Interacting]
     Active Substance: NOREPINEPHRINE
     Indication: Atrial fibrillation
     Route: 065
  13. NOREPINEPHRINE [Interacting]
     Active Substance: NOREPINEPHRINE
     Indication: Suicide attempt
  14. TERLIPRESSIN [Interacting]
     Active Substance: TERLIPRESSIN
     Indication: Atrial fibrillation
     Route: 065
  15. TERLIPRESSIN [Interacting]
     Active Substance: TERLIPRESSIN
     Indication: Suicide attempt
  16. ACTIVATED CHARCOAL [Interacting]
     Active Substance: ACTIVATED CHARCOAL
     Indication: Atrial fibrillation
     Route: 065
  17. ACTIVATED CHARCOAL [Interacting]
     Active Substance: ACTIVATED CHARCOAL
     Indication: Suicide attempt

REACTIONS (6)
  - Renal failure [Fatal]
  - Cardiac failure [Fatal]
  - Drug interaction [Fatal]
  - Cardiogenic shock [Fatal]
  - Poisoning deliberate [Fatal]
  - Toxicity to various agents [Fatal]
